FAERS Safety Report 7325016-7 (Version None)
Quarter: 2011Q1

REPORT INFORMATION
  Report Type: 
  Country: None (occurrence: None)
  Receive Date: 20110301
  Receipt Date: 20110228
  Transmission Date: 20110831
  Serious: Yes (Other)
  Sender: FDA-Public Use
  Company Number: US-BRISTOL-MYERS SQUIBB COMPANY-15574809

PATIENT
  Age: 76 Year
  Sex: Female
  Weight: 93 kg

DRUGS (12)
  1. TYLENOL (CAPLET) [Concomitant]
  2. ELAVIL [Concomitant]
     Dosage: AT NIGHT
  3. ZOLOFT [Suspect]
     Indication: DEPRESSION
     Dosage: FROM 50 MG DOSE CUT HALF
  4. NEURONTIN [Suspect]
     Indication: NEUROPATHY PERIPHERAL
     Dosage: HARD CAPSULE
  5. PRISTIQ [Suspect]
     Indication: DEPRESSION
     Dosage: REG2:50MG 1X/2DAY 0N JUN10-JUN10,REG3:50MG 1X/3DAY JUN10-JUN10,REG4:50MG 1X/4DAY 07JUN10- UNK,TAB.
     Dates: start: 20100524
  6. BENICAR [Concomitant]
     Dosage: 1DF:40/25 DAILY
  7. CELEBREX [Suspect]
     Indication: ARTHRITIS
  8. ALPHA BETIC [Concomitant]
  9. PROTONIX [Concomitant]
  10. ABILIFY [Suspect]
     Indication: DEPRESSION
     Route: 065
  11. PRANDIN [Concomitant]
     Dosage: 1DF:3HALVES OF THE 2MG
  12. CALCIUM + VITAMIN D [Concomitant]

REACTIONS (7)
  - WEIGHT INCREASED [None]
  - DEPRESSION [None]
  - AGITATION [None]
  - FATIGUE [None]
  - ARTHRITIS [None]
  - MOOD ALTERED [None]
  - NEUROPATHY PERIPHERAL [None]
